FAERS Safety Report 16790806 (Version 1)
Quarter: 2019Q3

REPORT INFORMATION
  Report Type: Spontaneous
  Country: PT (occurrence: PT)
  Receive Date: 20190910
  Receipt Date: 20190910
  Transmission Date: 20191005
  Serious: Yes (Other)
  Sender: FDA-Public Use
  Company Number: PT-TEVA-2019-PT-1105241

PATIENT
  Age: 73 Year
  Sex: Male

DRUGS (7)
  1. CYAMEMAZINE [Suspect]
     Active Substance: CYAMEMAZINE
     Dosage: (40 MG/ML, STRENGTH) 20MG (SIC) AT BEDTIME
     Route: 065
  2. QUETIAPINE. [Suspect]
     Active Substance: QUETIAPINE
     Dosage: 350 MILLIGRAM DAILY;
     Route: 065
  3. BROMAZEPAM [Concomitant]
     Active Substance: BROMAZEPAM
     Dosage: THREE TIMES DAILY; DURING BREAKFAST, LUNCH AND DINNER
     Route: 065
  4. LAMOTRIGINE. [Concomitant]
     Active Substance: LAMOTRIGINE
     Dosage: DURING BREAKFAST
     Route: 065
  5. QUETIAPINE. [Suspect]
     Active Substance: QUETIAPINE
     Dosage: 250 MILLIGRAM DAILY; AT BEDTME
     Route: 065
  6. MIRTAZAPINE. [Suspect]
     Active Substance: MIRTAZAPINE
     Indication: AKATHISIA
     Dosage: AT BEDTIME
     Route: 065
  7. QUETIAPINE. [Suspect]
     Active Substance: QUETIAPINE
     Dosage: SLOW RELEASE FORMULATION; AT BEDTME
     Route: 065

REACTIONS (3)
  - Loss of personal independence in daily activities [Recovering/Resolving]
  - Akathisia [Recovering/Resolving]
  - Mania [Unknown]
